FAERS Safety Report 9158625 (Version 1)
Quarter: 2013Q1

REPORT INFORMATION
  Report Type: Spontaneous
  Country: CA (occurrence: CA)
  Receive Date: 20130312
  Receipt Date: 20130312
  Transmission Date: 20140127
  Serious: Yes (Congenital Anomaly, Other)
  Sender: FDA-Public Use
  Company Number: PHHY2013CA022876

PATIENT
  Age: 10 Month
  Sex: Female

DRUGS (1)
  1. PREDNISONE [Suspect]
     Route: 064

REACTIONS (5)
  - Palatal disorder [Recovering/Resolving]
  - Velopharyngeal incompetence [Recovering/Resolving]
  - Regurgitation [Recovering/Resolving]
  - Otitis media [Recovering/Resolving]
  - Mental impairment [Recovering/Resolving]
